FAERS Safety Report 11392492 (Version 2)
Quarter: 2015Q4

REPORT INFORMATION
  Report Type: Report from Study
  Country: FR (occurrence: FR)
  Receive Date: 20150818
  Receipt Date: 20151020
  Transmission Date: 20160304
  Serious: Yes (Life-Threatening, Disabling, Other)
  Sender: FDA-Public Use
  Company Number: PHHY2015FR098809

PATIENT
  Age: 63 Year
  Sex: Male

DRUGS (6)
  1. TASIGNA [Suspect]
     Active Substance: NILOTINIB
     Indication: CHRONIC MYELOID LEUKAEMIA
     Dosage: 300 MG, BID
     Route: 048
     Dates: start: 20101202, end: 20150806
  2. TANGANIL//ACETYLLEUCINE [Concomitant]
     Indication: PRODUCT USED FOR UNKNOWN INDICATION
     Route: 065
  3. PRAVASTATIN [Concomitant]
     Active Substance: PRAVASTATIN\PRAVASTATIN SODIUM
     Indication: ARTERIOSCLEROSIS
     Dosage: 20 MG, QD
     Route: 065
     Dates: start: 20110301
  4. COVERSYL//PERINDOPRIL ERBUMINE [Concomitant]
     Active Substance: PERINDOPRIL
     Indication: CARDIOVASCULAR DISORDER
     Dosage: 2.5 MG, QD
     Route: 065
     Dates: start: 20110301
  5. FLUDEX [Concomitant]
     Active Substance: INDAPAMIDE
     Indication: HYPERTENSION
     Dosage: 1.5 MG, QD
     Route: 065
     Dates: start: 2011
  6. KARDEGIC [Concomitant]
     Active Substance: ASPIRIN LYSINE
     Indication: ARTERIOSCLEROSIS
     Dosage: 75 MG, QD
     Route: 065
     Dates: start: 20110301

REACTIONS (10)
  - Aphasia [Not Recovered/Not Resolved]
  - Hemianopia [Unknown]
  - Carotid artery stenosis [Unknown]
  - Arteriosclerosis [Unknown]
  - Paralysis [Unknown]
  - VIIth nerve paralysis [Unknown]
  - Ischaemic stroke [Recovered/Resolved with Sequelae]
  - Hypokinesia [Unknown]
  - Cerebral artery stenosis [Unknown]
  - Arteritis [Unknown]

NARRATIVE: CASE EVENT DATE: 20110301
